FAERS Safety Report 15243305 (Version 1)
Quarter: 2018Q3

REPORT INFORMATION
  Report Type: Spontaneous
  Country: US (occurrence: US)
  Receive Date: 20180712
  Receipt Date: 20180712
  Transmission Date: 20181010
  Serious: Yes (Other)
  Sender: FDA-Public Use
  Company Number: None

PATIENT
  Age: 41 Year
  Sex: Female
  Weight: 89.8 kg

DRUGS (3)
  1. BENADRYL 25 MG IVP [Concomitant]
  2. HYDROCORTISONE 100 MG IVP [Concomitant]
  3. TAXOL [Suspect]
     Active Substance: PACLITAXEL
     Indication: BREAST CANCER
     Dosage: ?          OTHER FREQUENCY:CONTINUOUS ONE TIM;?
     Route: 041
     Dates: start: 20180712, end: 20180712

REACTIONS (2)
  - Feeling hot [None]
  - Erythema [None]

NARRATIVE: CASE EVENT DATE: 20180712
